FAERS Safety Report 7118020-5 (Version None)
Quarter: 2010Q4

REPORT INFORMATION
  Report Type: 
  Country: None (occurrence: None)
  Receive Date: 20101123
  Receipt Date: 20101115
  Transmission Date: 20110411
  Serious: Yes (Life-Threatening, Other)
  Sender: FDA-Public Use
  Company Number: CA-JNJFOC-20100507075

PATIENT
  Sex: Female
  Weight: 58 kg

DRUGS (5)
  1. REMICADE [Suspect]
     Indication: CROHN'S DISEASE
     Route: 042
  2. REMICADE [Suspect]
     Route: 042
  3. IMURAN [Concomitant]
     Route: 048
  4. CIPRO [Concomitant]
     Indication: CROHN'S DISEASE
  5. FLAGYL [Concomitant]
     Indication: CROHN'S DISEASE

REACTIONS (1)
  - OVARIAN CANCER [None]
